FAERS Safety Report 9852139 (Version 1)
Quarter: 2014Q1

REPORT INFORMATION
  Report Type: Report from Study
  Country: NL (occurrence: NL)
  Receive Date: 20140129
  Receipt Date: 20140129
  Transmission Date: 20141002
  Serious: Yes (Hospitalization)
  Sender: FDA-Public Use
  Company Number: NL-MPIJNJ-2014JNJ000165

PATIENT
  Sex: 0

DRUGS (8)
  1. VELCADE [Suspect]
     Indication: PLASMA CELL MYELOMA
     Dosage: 2.5 MG, UNK
     Route: 058
     Dates: start: 20131230, end: 20140109
  2. CYCLOPHOSPHAMIDE [Suspect]
     Indication: PLASMA CELL MYELOMA
     Dosage: 1000 MG, UNK
     Route: 042
     Dates: start: 20140106
  3. DEXAMETHASONE [Suspect]
     Indication: PLASMA CELL MYELOMA
     Dosage: 40 MG, UNK
     Route: 048
     Dates: start: 20131230, end: 20140120
  4. COTRIMOXAZOL [Concomitant]
     Dosage: 480 MG, UNK
  5. VALACICLOVIR [Concomitant]
     Dosage: 500 MG, UNK
  6. LEXAPRO [Concomitant]
     Dosage: 20 MG, UNK
  7. FLUCONAZOL [Concomitant]
     Dosage: 200 MG, UNK
  8. METOPROLOL [Concomitant]
     Dosage: 50 MG, UNK

REACTIONS (1)
  - Parotid gland enlargement [Recovered/Resolved]
